FAERS Safety Report 12758104 (Version 1)
Quarter: 2016Q3

REPORT INFORMATION
  Report Type: Spontaneous
  Country: US (occurrence: US)
  Receive Date: 20160916
  Receipt Date: 20160916
  Transmission Date: 20161109
  Serious: No
  Sender: FDA-Public Use
  Company Number: None

PATIENT
  Age: 28 Year
  Sex: Female
  Weight: 69.3 kg

DRUGS (5)
  1. OMPERAZOLE [Concomitant]
     Active Substance: OMEPRAZOLE
  2. TACROLIMUS. [Concomitant]
     Active Substance: TACROLIMUS
  3. PREDNISONE. [Suspect]
     Active Substance: PREDNISONE
     Indication: IMMUNOSUPPRESSION
     Route: 048
     Dates: start: 20160707, end: 20160908
  4. WARFARIN [Concomitant]
     Active Substance: WARFARIN
  5. SMZ/TMP [Concomitant]
     Active Substance: SULFAMETHOXAZOLE\TRIMETHOPRIM

REACTIONS (1)
  - Cushingoid [None]

NARRATIVE: CASE EVENT DATE: 20160908
